FAERS Safety Report 20145070 (Version 2)
Quarter: 2021Q4

REPORT INFORMATION
  Report Type: Spontaneous
  Country: CN (occurrence: None)
  Receive Date: 20211203
  Receipt Date: 20211214
  Transmission Date: 20220303
  Serious: Yes (Hospitalization)
  Sender: FDA-Public Use
  Company Number: 2021A848534

PATIENT
  Age: 43 Year
  Sex: Female
  Weight: 60 kg

DRUGS (5)
  1. IMFINZI [Suspect]
     Active Substance: DURVALUMAB
     Indication: Small cell lung cancer extensive stage
     Dosage: LAST DOSE WAS 1000 MG / CYCLE
     Route: 042
     Dates: start: 20210707, end: 20210728
  2. ETOPOSIDE [Concomitant]
     Active Substance: ETOPOSIDE
     Indication: Small cell lung cancer extensive stage
  3. CARBOPLATIN [Concomitant]
     Active Substance: CARBOPLATIN
     Indication: Small cell lung cancer extensive stage
  4. CIS-PLATIN [Concomitant]
     Indication: Small cell lung cancer extensive stage
  5. CATEQUENTINIB [Concomitant]
     Active Substance: CATEQUENTINIB

REACTIONS (1)
  - Myelosuppression [Not Recovered/Not Resolved]
